FAERS Safety Report 9403418 (Version 1)
Quarter: 2013Q3

REPORT INFORMATION
  Report Type: Report from Study
  Country: US (occurrence: US)
  Receive Date: 20130716
  Receipt Date: 20130716
  Transmission Date: 20140515
  Serious: Yes (Other)
  Sender: FDA-Public Use
  Company Number: US-US-EMD SERONO, INC.-7223543

PATIENT
  Sex: Female

DRUGS (2)
  1. REBIF [Suspect]
     Indication: PRODUCT USED FOR UNKNOWN INDICATION
     Route: 058
     Dates: start: 200201, end: 20120425
  2. REBIF [Suspect]
     Route: 058
     Dates: start: 20130507

REACTIONS (5)
  - Pulmonary embolism [Unknown]
  - Myocardial infarction [Unknown]
  - Menorrhagia [Unknown]
  - Anaemia [Unknown]
  - Urethral disorder [Unknown]
